FAERS Safety Report 6579941-5 (Version None)
Quarter: 2010Q1

REPORT INFORMATION
  Report Type: 
  Country: None (occurrence: None)
  Receive Date: 20100212
  Receipt Date: 20100203
  Transmission Date: 20100710
  Serious: Yes (Other)
  Sender: FDA-Public Use
  Company Number: US-PFIZER INC-2010004769

PATIENT
  Sex: Male
  Weight: 70.295 kg

DRUGS (7)
  1. LIPITOR [Suspect]
     Indication: BLOOD CHOLESTEROL INCREASED
     Dosage: 80 MG, 1X/DAY
     Route: 048
     Dates: start: 20090901
  2. LIPITOR [Suspect]
     Route: 048
     Dates: start: 20091001
  3. PLAVIX [Concomitant]
     Dosage: UNK
     Dates: start: 20090901
  4. RAMIPRIL [Concomitant]
     Dosage: 5 MG, UNK
     Dates: start: 20090901
  5. ACETYLSALICYLIC ACID [Concomitant]
     Dosage: UNK
     Dates: start: 20090901
  6. ZETIA [Concomitant]
     Dosage: UNK
     Dates: start: 20090901
  7. METOPROLOL TARTRATE [Concomitant]
     Dosage: UNK
     Dates: start: 20090901

REACTIONS (1)
  - OESOPHAGITIS [None]
